FAERS Safety Report 12314123 (Version 4)
Quarter: 2016Q2

REPORT INFORMATION
  Report Type: Spontaneous
  Country: US (occurrence: US)
  Receive Date: 20160428
  Receipt Date: 20160531
  Transmission Date: 20160815
  Serious: Yes (Hospitalization, Other)
  Sender: FDA-Public Use
  Company Number: US-CELGENEUS-USA-2016046664

PATIENT
  Age: 71 Year
  Sex: Female
  Weight: 70.96 kg

DRUGS (1)
  1. REVLIMID [Suspect]
     Active Substance: LENALIDOMIDE
     Indication: PLASMA CELL MYELOMA
     Dosage: 25 MILLIGRAM
     Route: 048
     Dates: start: 20160324, end: 20160414

REACTIONS (9)
  - Neuropathy peripheral [Unknown]
  - Asthenia [Unknown]
  - Hypoaesthesia [Unknown]
  - Swelling [Not Recovered/Not Resolved]
  - Weight increased [Not Recovered/Not Resolved]
  - Swelling face [Not Recovered/Not Resolved]
  - Rash generalised [Not Recovered/Not Resolved]
  - Abdominal distension [Unknown]
  - Plasma cell myeloma [Unknown]

NARRATIVE: CASE EVENT DATE: 20160422
